FAERS Safety Report 4277803-X (Version None)
Quarter: 2004Q1

REPORT INFORMATION
  Report Type: 
  Country: None (occurrence: None)
  Receive Date: 20040122
  Receipt Date: 20040122
  Transmission Date: 20041129
  Serious: Yes (Other)
  Sender: FDA-Public Use
  Company Number: None

PATIENT
  Age: 53 Year
  Sex: Female

DRUGS (2)
  1. LEVAQUIN [Suspect]
     Indication: COUGH
     Dosage: 500 MG PO DAILY X 10 DAYS
     Route: 048
     Dates: start: 20031212, end: 20031222
  2. LEVAQUIN [Suspect]
     Indication: PRODUCTIVE COUGH
     Dosage: 500 MG PO DAILY X 10 DAYS
     Route: 048
     Dates: start: 20031212, end: 20031222

REACTIONS (3)
  - ARTHRALGIA [None]
  - ASTHENIA [None]
  - MYALGIA [None]
